FAERS Safety Report 8978683 (Version 5)
Quarter: 2013Q4

REPORT INFORMATION
  Report Type: Report from Study
  Country: DE (occurrence: DE)
  Receive Date: 20121221
  Receipt Date: 20131125
  Transmission Date: 20140711
  Serious: Yes (Hospitalization)
  Sender: FDA-Public Use
  Company Number: DE-BAYER-2012-108806

PATIENT
  Sex: Male
  Weight: 94 kg

DRUGS (3)
  1. REGORAFENIB [Suspect]
     Indication: COLON CANCER
     Dosage: 160 MG, QD
     Route: 048
     Dates: start: 20121010, end: 20121016
  2. DAFIRO [Concomitant]
     Indication: HYPERTENSION
  3. IODINE (131 I) [Concomitant]
     Indication: COMPUTERISED TOMOGRAM
     Dosage: 90 ML, ONCE
     Dates: start: 20121012, end: 20121012

REACTIONS (2)
  - Dyspnoea [Recovering/Resolving]
  - Renal failure acute [Recovered/Resolved]
